FAERS Safety Report 5801629-6 (Version None)
Quarter: 2008Q3

REPORT INFORMATION
  Report Type: 
  Country: None (occurrence: None)
  Receive Date: 20080707
  Receipt Date: 20080630
  Transmission Date: 20090109
  Serious: Yes (Other)
  Sender: FDA-Public Use
  Company Number: A0731765A

PATIENT
  Age: 54 Year
  Sex: Male
  Weight: 93.2 kg

DRUGS (5)
  1. ADVAIR DISKUS 100/50 [Suspect]
     Indication: ASTHMA
     Route: 055
  2. ACIPHEX [Concomitant]
     Route: 048
  3. ZYRTEC [Concomitant]
     Indication: MULTIPLE ALLERGIES
     Route: 048
  4. BENICAR HCT [Concomitant]
     Indication: HYPERTENSION
     Route: 048
  5. CLONAZEPAM [Concomitant]
     Dosage: .5MG AS REQUIRED
     Route: 048

REACTIONS (9)
  - ASTHMA [None]
  - DIZZINESS [None]
  - NASAL CONGESTION [None]
  - PHARMACEUTICAL PRODUCT COMPLAINT [None]
  - POSTNASAL DRIP [None]
  - PULMONARY FUNCTION TEST DECREASED [None]
  - RESPIRATORY TRACT CONGESTION [None]
  - SECRETION DISCHARGE [None]
  - SYNCOPE [None]
